FAERS Safety Report 7371479-0 (Version None)
Quarter: 2011Q1

REPORT INFORMATION
  Report Type: 
  Country: None (occurrence: None)
  Receive Date: 20110322
  Receipt Date: 20110322
  Transmission Date: 20110831
  Serious: Yes (Life-Threatening, Hospitalization)
  Sender: FDA-Public Use
  Company Number: None

PATIENT
  Age: 48 Year
  Sex: Female
  Weight: 124.7392 kg

DRUGS (2)
  1. PROVERA [Suspect]
     Indication: UTERINE LEIOMYOMA
     Dosage: 10 MG DAILY PO
     Route: 048
     Dates: start: 20110225, end: 20110304
  2. PROVERA [Suspect]
     Indication: ANAEMIA
     Dosage: 10 MG DAILY PO
     Route: 048
     Dates: start: 20110225, end: 20110304

REACTIONS (4)
  - IRON DEFICIENCY ANAEMIA [None]
  - CHEST PAIN [None]
  - VENTRICULAR FIBRILLATION [None]
  - DEVICE OCCLUSION [None]
